FAERS Safety Report 6969408-4 (Version None)
Quarter: 2010Q3

REPORT INFORMATION
  Report Type: 
  Country: None (occurrence: None)
  Receive Date: 20100902
  Receipt Date: 20100817
  Transmission Date: 20110219
  Serious: Yes (Hospitalization)
  Sender: FDA-Public Use
  Company Number: 006953

PATIENT
  Sex: Female

DRUGS (14)
  1. CERTOLIZUMAB PEGOL (CERTOLIZUMAB PEGOL) [Suspect]
     Indication: RHEUMATOID ARTHRITIS
     Dosage: (RA0006 SUBCUTANEOUS), (200 MG 1X/2 WEEKS SUBCUTANEOUS)
     Route: 058
     Dates: start: 20091126
  2. CERTOLIZUMAB PEGOL (CERTOLIZUMAB PEGOL) [Suspect]
     Indication: RHEUMATOID ARTHRITIS
     Dosage: (RA0006 SUBCUTANEOUS), (200 MG 1X/2 WEEKS SUBCUTANEOUS)
     Route: 058
     Dates: start: 20100218
  3. CERTOLIZUMAB PEGOL (CERTOLIZUMAB PEGOL) [Suspect]
     Indication: RHEUMATOID ARTHRITIS
     Dosage: (RA0006 SUBCUTANEOUS), (200 MG 1X/2 WEEKS SUBCUTANEOUS)
     Route: 058
     Dates: start: 20100318
  4. PREDNISOLONE [Suspect]
     Indication: RHEUMATOID ARTHRITIS
     Dosage: (5 MG ORAL)
     Route: 048
     Dates: start: 20090503
  5. FELBINAC [Concomitant]
  6. KETOPROFEN [Concomitant]
  7. ZALTOPROFEN [Concomitant]
  8. MOSAPRIDE CITRATE [Concomitant]
  9. TAUROURSODESOXYCHOLIC ACID [Concomitant]
  10. INSULIN LISPRO [Concomitant]
  11. VOGLIBOSE [Concomitant]
  12. MAGNESIUM OXIDE [Concomitant]
  13. BROTIZOLAM [Concomitant]
  14. EZETIMIBE [Concomitant]

REACTIONS (6)
  - BACK PAIN [None]
  - NO THERAPEUTIC RESPONSE [None]
  - OSTEOPOROSIS [None]
  - OSTEOSCLEROSIS [None]
  - PNEUMONIA [None]
  - SPINAL COMPRESSION FRACTURE [None]
